FAERS Safety Report 25139704 (Version 1)
Quarter: 2025Q1

REPORT INFORMATION
  Report Type: Report from Study
  Country: US (occurrence: US)
  Receive Date: 20250331
  Receipt Date: 20250331
  Transmission Date: 20250409
  Serious: Yes (Other)
  Sender: GILEAD
  Company Number: US-GILEAD-2025-0708833

PATIENT
  Sex: Female

DRUGS (2)
  1. AMBRISENTAN [Suspect]
     Active Substance: AMBRISENTAN
     Indication: Pulmonary hypertension
     Dosage: 10 MG, QD
     Route: 065
     Dates: start: 20250224
  2. TADALAFIL [Concomitant]
     Active Substance: TADALAFIL

REACTIONS (4)
  - Shoulder operation [Unknown]
  - Dizziness [Unknown]
  - Seasonal allergy [Unknown]
  - Feeling abnormal [Unknown]
